FAERS Safety Report 7605208-X (Version None)
Quarter: 2011Q3

REPORT INFORMATION
  Report Type: 
  Country: None (occurrence: None)
  Receive Date: 20110712
  Receipt Date: 20110712
  Transmission Date: 20111222
  Serious: Yes (Hospitalization)
  Sender: FDA-Public Use
  Company Number: None

PATIENT
  Age: 33 Year
  Sex: Male
  Weight: 61.1 kg

DRUGS (2)
  1. QUETIAPINE [Suspect]
     Dosage: 1 TAB MG HS PO, 1/2 TAB HS PO
     Route: 048
     Dates: start: 20100914
  2. QUETIAPINE [Suspect]
     Dosage: 1 TAB MG HS PO, 1/2 TAB HS PO
     Route: 048
     Dates: start: 20100525

REACTIONS (2)
  - OVERDOSE [None]
  - UNRESPONSIVE TO STIMULI [None]
